FAERS Safety Report 7213553-5 (Version None)
Quarter: 2011Q1

REPORT INFORMATION
  Report Type: 
  Country: None (occurrence: None)
  Receive Date: 20110106
  Receipt Date: 20101224
  Transmission Date: 20110831
  Serious: Yes (Life-Threatening, Hospitalization)
  Sender: FDA-Public Use
  Company Number: GB-JNJFOC-20101002678

PATIENT
  Age: 26 Year
  Sex: Female
  Weight: 62 kg

DRUGS (6)
  1. SYMBICORT [Concomitant]
     Indication: ASTHMA
     Route: 055
  2. BRICANYL [Concomitant]
     Indication: ASTHMA
     Route: 055
  3. HYDROXYCHLOROQUINE [Concomitant]
     Indication: RHEUMATOID ARTHRITIS
  4. FOLIC ACID [Concomitant]
     Indication: RHEUMATOID ARTHRITIS
     Route: 048
  5. GOLIMUMAB [Suspect]
     Indication: RHEUMATOID ARTHRITIS
     Dosage: 3 DOSES
     Route: 058
  6. METHOTREXATE [Suspect]
     Indication: RHEUMATOID ARTHRITIS
     Route: 048

REACTIONS (2)
  - VARICES OESOPHAGEAL [None]
  - LIVER DISORDER [None]
